FAERS Safety Report 7098610-9 (Version None)
Quarter: 2010Q4

REPORT INFORMATION
  Report Type: 
  Country: None (occurrence: None)
  Receive Date: 20101112
  Receipt Date: 20101104
  Transmission Date: 20110411
  Serious: Yes (Death, Other)
  Sender: FDA-Public Use
  Company Number: US-JNJFOC-20101102156

PATIENT
  Age: 58 Year
  Sex: Female
  Weight: 107.96 kg

DRUGS (12)
  1. FLEXERIL [Suspect]
     Indication: ILL-DEFINED DISORDER
     Route: 048
  2. CHANTIX [Suspect]
     Indication: SMOKING CESSATION THERAPY
     Route: 048
  3. LYRICA [Suspect]
     Indication: FIBROMYALGIA
  4. ELAVIL [Suspect]
     Indication: ILL-DEFINED DISORDER
  5. KLONOPIN [Suspect]
     Indication: ILL-DEFINED DISORDER
  6. SPIRIVA [Concomitant]
     Dosage: 18MCG DAILY
  7. ZOLOFT [Concomitant]
  8. OXYCONTIN [Concomitant]
  9. SKELAXIN [Concomitant]
  10. NEURONTIN [Concomitant]
  11. ZETIA [Concomitant]
  12. SEPTRA DS [Concomitant]
     Indication: URINARY TRACT INFECTION

REACTIONS (5)
  - ACCIDENTAL DEATH [None]
  - ANTICONVULSANT DRUG LEVEL ABOVE THERAPEUTIC [None]
  - DRUG TOXICITY [None]
  - MUSCLE RELAXANT DRUG LEVEL ABOVE THERAPEUTIC [None]
  - URINARY TRACT INFECTION [None]
